FAERS Safety Report 4369571-8 (Version None)
Quarter: 2004Q2

REPORT INFORMATION
  Report Type: 
  Country: None (occurrence: None)
  Receive Date: 20040603
  Receipt Date: 20040506
  Transmission Date: 20050107
  Serious: Yes (Hospitalization)
  Sender: FDA-Public Use
  Company Number: PHBS2004JP06131

PATIENT
  Age: 42 Year
  Sex: Female
  Weight: 59 kg

DRUGS (4)
  1. SANOREX [Suspect]
     Indication: OBESITY
     Dosage: 1 MG, BID
     Route: 048
     Dates: start: 20040501, end: 20040501
  2. SANOREX [Suspect]
     Dosage: .5 MG, QD
     Route: 048
     Dates: start: 20040430, end: 20040430
  3. CHOLEBRINE [Suspect]
     Indication: HYPERCHOLESTEROLAEMIA
     Route: 048
     Dates: start: 20040101, end: 20040501
  4. BOUFUUTSUUSHOUSAN [Suspect]
     Indication: OBESITY
     Route: 048
     Dates: start: 20040101, end: 20040501

REACTIONS (9)
  - ANAPHYLACTIC SHOCK [None]
  - DRUG ERUPTION [None]
  - DYSPNOEA [None]
  - ERYTHEMA [None]
  - HYPOTENSION [None]
  - PRURITUS [None]
  - PYREXIA [None]
  - RASH [None]
  - TACHYCARDIA [None]
